FAERS Safety Report 5750839-5 (Version None)
Quarter: 2008Q2

REPORT INFORMATION
  Report Type: 
  Country: None (occurrence: None)
  Receive Date: 20080528
  Receipt Date: 20080523
  Transmission Date: 20081010
  Serious: Yes (Death)
  Sender: FDA-Public Use
  Company Number: B0514372A

PATIENT
  Age: 79 Year
  Sex: Male
  Weight: 100 kg

DRUGS (2)
  1. AVANDIA [Suspect]
     Dates: start: 20020426
  2. METFORMIN HCL [Concomitant]
     Dosage: 2500MG PER DAY
     Route: 048
     Dates: start: 19880101

REACTIONS (1)
  - DEATH [None]
